FAERS Safety Report 4681597-3 (Version None)
Quarter: 2005Q2

REPORT INFORMATION
  Report Type: 
  Country: None (occurrence: None)
  Receive Date: 20050602
  Receipt Date: 20050512
  Transmission Date: 20051028
  Serious: Yes (Hospitalization, Other)
  Sender: FDA-Public Use
  Company Number: USA050187814

PATIENT
  Age: 13 Year
  Sex: Male
  Weight: 33 kg

DRUGS (7)
  1. HUMATROPE [Suspect]
     Indication: GROWTH HORMONE DEFICIENCY
     Dosage: 1.5 MG /6 WEEK
     Dates: start: 20010307
  2. ZYRTEC [Concomitant]
  3. CLARINEX  /USA/ (DESLORATADINE) [Concomitant]
  4. SINGULAIR (MONTELUKAST) [Concomitant]
  5. ACIPEX (RABEPRAZOLE SODIUM) [Concomitant]
  6. DICLOXACILLIN [Concomitant]
  7. ZANTAC [Concomitant]

REACTIONS (1)
  - PARATHYROID TUMOUR BENIGN [None]
